FAERS Safety Report 7979583-0 (Version None)
Quarter: 2011Q4

REPORT INFORMATION
  Report Type: 
  Country: None (occurrence: None)
  Receive Date: 20111213
  Receipt Date: 20111213
  Transmission Date: 20120403
  Serious: No
  Sender: FDA-Public Use
  Company Number: None

PATIENT
  Age: 85 Year
  Sex: Male

DRUGS (2)
  1. DRONEDARONE HCL [Suspect]
     Indication: ATRIAL FLUTTER
     Dosage: 400 MG BID PO
     Route: 048
     Dates: start: 20101001, end: 20101013
  2. DRONEDARONE HCL [Suspect]
     Indication: ATRIAL TACHYCARDIA
     Dosage: 400 MG BID PO
     Route: 048
     Dates: start: 20101001, end: 20101013

REACTIONS (1)
  - DIZZINESS [None]
